FAERS Safety Report 5803173-9 (Version None)
Quarter: 2008Q2

REPORT INFORMATION
  Report Type: 
  Country: None (occurrence: None)
  Receive Date: 20080627
  Receipt Date: 20080324
  Transmission Date: 20081010
  Serious: Yes (Hospitalization)
  Sender: FDA-Public Use
  Company Number: PHEH2008US03066

PATIENT
  Age: 77 Year
  Sex: Female

DRUGS (1)
  1. RECLAST [Suspect]
     Dosage: 5 MG YEARLY, INTRAVENOUS
     Route: 042
     Dates: start: 20080229, end: 20080229

REACTIONS (4)
  - ARTHRALGIA [None]
  - BONE PAIN [None]
  - MYALGIA [None]
  - PAIN [None]
